FAERS Safety Report 5765899-5 (Version None)
Quarter: 2008Q2

REPORT INFORMATION
  Report Type: 
  Country: None (occurrence: None)
  Receive Date: 20080606
  Receipt Date: 20080604
  Transmission Date: 20081010
  Serious: Yes (Death, Life-Threatening)
  Sender: FDA-Public Use
  Company Number: 2008SP009426

PATIENT
  Age: 46 Year
  Sex: Female

DRUGS (7)
  1. PEG-INTRON [Suspect]
     Indication: HEPATITIS C
     Dosage: 96 MCG; QW; SC
     Route: 058
     Dates: start: 20071010
  2. RIBAVIRIN [Suspect]
     Indication: HEPATITIS C
     Dosage: 1000 MG; QD; PO
     Route: 048
     Dates: start: 20071010
  3. PERCOCET [Suspect]
     Indication: BACK PAIN
     Dosage: 325 MG; BID;
  4. MS CONTIN [Suspect]
     Indication: BACK PAIN
     Dosage: 30 MG; Q12H;
  5. CELEXA [Concomitant]
  6. PREVACID [Concomitant]
  7. VALIUM [Concomitant]

REACTIONS (9)
  - DEPRESSION [None]
  - DYSPNOEA [None]
  - FATIGUE [None]
  - INSOMNIA [None]
  - MALAISE [None]
  - NAUSEA [None]
  - RESPIRATORY DEPRESSION [None]
  - UNRESPONSIVE TO STIMULI [None]
  - WHITE BLOOD CELL COUNT DECREASED [None]
